FAERS Safety Report 24985469 (Version 1)
Quarter: 2025Q1

REPORT INFORMATION
  Report Type: Spontaneous
  Country: US (occurrence: US)
  Receive Date: 20250219
  Receipt Date: 20250219
  Transmission Date: 20250408
  Serious: Yes (Death, Hospitalization)
  Sender: MYLAN
  Company Number: US-MYLANLABS-2025M1014500

PATIENT
  Age: 8 Decade
  Sex: Female

DRUGS (13)
  1. PREDNISONE [Interacting]
     Active Substance: PREDNISONE
     Indication: Immunoglobulin G4 related disease
     Dosage: 40 MILLIGRAM, QD
     Route: 065
  2. PREDNISONE [Interacting]
     Active Substance: PREDNISONE
     Indication: Serositis
  3. METHYLPREDNISOLONE [Suspect]
     Active Substance: METHYLPREDNISOLONE
     Indication: Immunoglobulin G4 related disease
     Dosage: 48 MILLIGRAM, QD (TAPERED BY 8 MG EVERY WEEK, FROM 48 MG DAILY TO 16 MG DAILY MAINTENANCE)
     Route: 048
  4. METHYLPREDNISOLONE [Suspect]
     Active Substance: METHYLPREDNISOLONE
     Indication: Serositis
     Dosage: 16 MILLIGRAM, QD (LOW-DOSE)
     Route: 065
  5. METHYLPREDNISOLONE [Suspect]
     Active Substance: METHYLPREDNISOLONE
     Dosage: 12 MILLIGRAM, QD
     Route: 065
  6. METHYLPREDNISOLONE [Suspect]
     Active Substance: METHYLPREDNISOLONE
     Dosage: MAINTAINED ON 8 MILLIGRAM, QD
     Route: 065
  7. MYCOPHENOLATE MOFETIL [Suspect]
     Active Substance: MYCOPHENOLATE MOFETIL
     Indication: Immunoglobulin G4 related disease
     Route: 065
  8. MYCOPHENOLATE MOFETIL [Suspect]
     Active Substance: MYCOPHENOLATE MOFETIL
     Indication: Serositis
     Dosage: TITRATED UP TO 1.5 G TWO TIMES PER DAY (BID)
     Route: 065
  9. OCTREOTIDE [Suspect]
     Active Substance: OCTREOTIDE
     Indication: Immunoglobulin G4 related disease
     Route: 034
  10. OCTREOTIDE [Suspect]
     Active Substance: OCTREOTIDE
     Indication: Serositis
  11. RIFAMPIN [Interacting]
     Active Substance: RIFAMPIN
     Indication: Latent tuberculosis
     Route: 065
  12. COLCHICINE [Suspect]
     Active Substance: COLCHICINE
     Indication: Pericardial effusion
     Route: 065
  13. IBUPROFEN [Suspect]
     Active Substance: IBUPROFEN
     Indication: Pericardial effusion
     Route: 065

REACTIONS (4)
  - Treatment failure [Fatal]
  - Sepsis [Unknown]
  - Drug interaction [Unknown]
  - Off label use [Unknown]
